FAERS Safety Report 23508596 (Version 2)
Quarter: 2024Q1

REPORT INFORMATION
  Report Type: Spontaneous
  Country: JP (occurrence: JP)
  Receive Date: 20240209
  Receipt Date: 20240229
  Transmission Date: 20240410
  Serious: Yes (Hospitalization)
  Sender: FDA-Public Use
  Company Number: JP-Eisai-202313638_DVG_P_1

PATIENT
  Age: 0 Year
  Sex: Female
  Weight: 2.12 kg

DRUGS (3)
  1. DAYVIGO [Suspect]
     Active Substance: LEMBOREXANT
     Indication: Foetal exposure during pregnancy
     Dosage: 5MG + 5MG/DOSE AS NEEDED
     Route: 064
     Dates: end: 20210417
  2. FLUNITRAZEPAM [Suspect]
     Active Substance: FLUNITRAZEPAM
     Indication: Foetal exposure during pregnancy
     Route: 064
     Dates: end: 20210417
  3. DORAL [Concomitant]
     Active Substance: QUAZEPAM
     Indication: Foetal exposure during pregnancy
     Route: 064

REACTIONS (6)
  - Low birth weight baby [Recovering/Resolving]
  - Hyperreflexia [Recovered/Resolved]
  - Tremor [Recovered/Resolved]
  - Somnolence [Recovered/Resolved]
  - Poor weight gain neonatal [Unknown]
  - Foetal exposure during pregnancy [Unknown]

NARRATIVE: CASE EVENT DATE: 20210417
